FAERS Safety Report 9720167 (Version 2)
Quarter: 2014Q1

REPORT INFORMATION
  Report Type: Spontaneous
  Country: US (occurrence: US)
  Receive Date: 20131129
  Receipt Date: 20140129
  Transmission Date: 20141002
  Serious: No
  Sender: FDA-Public Use
  Company Number: US-009507513-1311USA010745

PATIENT
  Age: 70 Year
  Sex: Female
  Weight: 95.24 kg

DRUGS (4)
  1. DULERA [Suspect]
     Indication: DYSPNOEA
     Dosage: 2 PUFF TWICE A DAY
     Route: 055
     Dates: start: 20131001, end: 20131030
  2. DULERA [Suspect]
     Indication: ASTHMA
  3. DULERA [Suspect]
     Indication: CHRONIC OBSTRUCTIVE PULMONARY DISEASE
  4. SINGULAIR [Concomitant]
     Dosage: UNK

REACTIONS (4)
  - Ear discomfort [Recovering/Resolving]
  - Dyspnoea [Recovered/Resolved]
  - Cough [Recovering/Resolving]
  - Dizziness [Recovering/Resolving]
